FAERS Safety Report 7463004-0 (Version None)
Quarter: 2011Q2

REPORT INFORMATION
  Report Type: 
  Country: None (occurrence: None)
  Receive Date: 20110506
  Receipt Date: 20110425
  Transmission Date: 20111010
  Serious: Yes (Hospitalization)
  Sender: FDA-Public Use
  Company Number: AR-JNJFOC-20110411210

PATIENT
  Sex: Female

DRUGS (7)
  1. MEPREDNISONE [Concomitant]
     Route: 048
  2. ENALAPRIL [Concomitant]
     Route: 048
  3. REMICADE [Suspect]
     Route: 042
  4. METHOTREXATE [Concomitant]
     Route: 048
  5. REMICADE [Suspect]
     Indication: RHEUMATOID ARTHRITIS
     Route: 042
  6. IBANDRONATE [Concomitant]
     Route: 048
  7. FOLIC ACID [Concomitant]
     Route: 048

REACTIONS (1)
  - ISCHAEMIC STROKE [None]
